FAERS Safety Report 8171593-6 (Version None)
Quarter: 2012Q1

REPORT INFORMATION
  Report Type: 
  Country: None (occurrence: None)
  Receive Date: 20120104
  Receipt Date: 20111111
  Transmission Date: 20120608
  Serious: No
  Sender: FDA-Public Use
  Company Number: 2011HGS-002789

PATIENT
  Age: 40 Year
  Sex: Female
  Weight: 83.9154 kg

DRUGS (14)
  1. BENLYSTA [Suspect]
     Indication: SYSTEMIC LUPUS ERYTHEMATOSUS
     Dosage: 10 MG/KG, 1 IN 28 D, INTRAVENOUS DRIP
     Route: 041
     Dates: start: 20110617
  2. DIOVAN HCT (CO-DIOVAN) (HYDROCHLOROTHIAZIDE, VALSARTAN) [Concomitant]
  3. ULTRAM EQ (TRAMADOL HYDROCHLORIDE) [Concomitant]
  4. BYSTOLIC [Concomitant]
  5. NAPROXEN (ALEVE) [Concomitant]
  6. CYMBALTA [Concomitant]
  7. WELLBUTRIN XL [Concomitant]
  8. PLAQUENIL [Concomitant]
  9. CYTOMEL [Concomitant]
  10. METHOTREXATE [Concomitant]
  11. KLONOPIN [Concomitant]
  12. LIDODERM [Concomitant]
  13. TOLMETIN (TOLMETIN) [Concomitant]
  14. SYNTHROID [Concomitant]

REACTIONS (7)
  - ATELECTASIS [None]
  - PLEURITIC PAIN [None]
  - BRONCHITIS [None]
  - RASH [None]
  - ASTHMA [None]
  - PRURITUS [None]
  - ERYTHEMA [None]
